FAERS Safety Report 7130245-1 (Version None)
Quarter: 2010Q4

REPORT INFORMATION
  Report Type: 
  Country: None (occurrence: None)
  Receive Date: 20101116
  Receipt Date: 20101102
  Transmission Date: 20110411
  Serious: Yes (Hospitalization, Disabling)
  Sender: FDA-Public Use
  Company Number: 20100514

PATIENT
  Sex: Female

DRUGS (1)
  1. VENOFER [Suspect]
     Dosage: INTRAVENOUS
     Route: 042

REACTIONS (3)
  - INFUSION SITE DISCOLOURATION [None]
  - INFUSION SITE EXTRAVASATION [None]
  - INFUSION SITE NECROSIS [None]
